FAERS Safety Report 16164744 (Version 3)
Quarter: 2019Q2

REPORT INFORMATION
  Report Type: Report from Study
  Country: US (occurrence: US)
  Receive Date: 20190405
  Receipt Date: 20190426
  Transmission Date: 20190711
  Serious: Yes (Hospitalization, Other)
  Sender: FDA-Public Use
  Company Number: US-BRISTOL-MYERS SQUIBB COMPANY-BMS-2019-031356

PATIENT
  Age: 78 Year
  Sex: Male
  Weight: 80.54 kg

DRUGS (3)
  1. IPILIMUMAB [Suspect]
     Active Substance: IPILIMUMAB
     Indication: SMALL CELL LUNG CANCER
     Dosage: 260 MILLIGRAM ONCE
     Route: 042
     Dates: start: 20190213, end: 20190327
  2. NIVOLUMAB [Suspect]
     Active Substance: NIVOLUMAB
     Indication: SMALL CELL LUNG CANCER
     Dosage: 87 MILLIGRAM/KILOGRAM ONCE
     Route: 042
     Dates: start: 20190213, end: 20190327
  3. PLINABULIN [Suspect]
     Active Substance: PLINABULIN
     Indication: SMALL CELL LUNG CANCER
     Dosage: 42 MILLIGRAM ONCE
     Route: 042
     Dates: start: 20190213, end: 20190327

REACTIONS (2)
  - Malignant neoplasm progression [Unknown]
  - Immune-mediated hepatitis [Recovered/Resolved]

NARRATIVE: CASE EVENT DATE: 20190322
